FAERS Safety Report 9443067 (Version 1)
Quarter: 2013Q3

REPORT INFORMATION
  Report Type: Spontaneous
  Country: FR (occurrence: FR)
  Receive Date: 20130806
  Receipt Date: 20130806
  Transmission Date: 20140515
  Serious: Yes (Hospitalization)
  Sender: FDA-Public Use
  Company Number: FR-WATSON-2013-13764

PATIENT
  Age: 57 Year
  Sex: Male

DRUGS (11)
  1. PREDNISONE (UNKNOWN) [Suspect]
     Indication: LUNG DISORDER
     Dosage: 50 MG, UNK
     Route: 048
     Dates: start: 20100810, end: 20100823
  2. BECLOMETASONE (UNKNOWN) [Suspect]
     Indication: BRONCHITIS CHRONIC
     Route: 055
  3. METHYLPREDNISOLONE (UNKNOWN) [Suspect]
     Indication: LUNG DISORDER
     Dosage: 140 MG, DAILY
     Route: 042
     Dates: start: 20100804, end: 20100809
  4. PREZISTA [Suspect]
     Indication: HIV INFECTION
     Dosage: 800 MG, UNKNOWN
     Route: 048
     Dates: start: 20100819
  5. NORVIR [Suspect]
     Indication: HIV INFECTION
     Dosage: 100 MG, UNKNOWN
     Route: 048
     Dates: start: 20100819
  6. TRUVADA [Suspect]
     Indication: HIV INFECTION
     Dosage: 1 DF, UNKNOWN
     Route: 048
     Dates: start: 20100819
  7. SPIRIVA [Concomitant]
     Indication: PRODUCT USED FOR UNKNOWN INDICATION
     Dosage: 1 DF, DAILY
     Route: 065
  8. BECLOMETHASONE W/FENOTEROL [Concomitant]
     Indication: PRODUCT USED FOR UNKNOWN INDICATION
  9. BACTRIM [Concomitant]
     Indication: PRODUCT USED FOR UNKNOWN INDICATION
     Dosage: 1 DF, DAILY
     Dates: start: 20100731
  10. XATRAL [Concomitant]
     Indication: PRODUCT USED FOR UNKNOWN INDICATION
     Dosage: LP10 ONCE DAILY
     Dates: start: 20100821
  11. IMOVANE [Concomitant]
     Indication: PRODUCT USED FOR UNKNOWN INDICATION
     Dosage: 1 DF, DAILY
     Dates: start: 201008

REACTIONS (2)
  - Osteoporotic fracture [Not Recovered/Not Resolved]
  - Spinal compression fracture [Not Recovered/Not Resolved]
